FAERS Safety Report 25214350 (Version 3)
Quarter: 2025Q3

REPORT INFORMATION
  Report Type: Spontaneous
  Country: CA (occurrence: CA)
  Receive Date: 20250418
  Receipt Date: 20250908
  Transmission Date: 20251020
  Serious: Yes (Hospitalization, Other)
  Sender: PFIZER
  Company Number: CA-PFIZER INC-202500043491

PATIENT
  Age: 76 Year
  Sex: Male

DRUGS (18)
  1. VYNDAMAX [Suspect]
     Active Substance: TAFAMIDIS
     Indication: Cardiac amyloidosis
     Dosage: 61 MG, 1X/DAY
     Route: 048
     Dates: start: 20240909
  2. ALLOPURINOL [Concomitant]
     Active Substance: ALLOPURINOL
     Dosage: 200 MG, 1X/DAY, (2 TAB OD)
     Route: 048
  3. ALVESCO [Concomitant]
     Active Substance: CICLESONIDE
     Dosage: 200 UG, 2X/DAY, (2 PUFFS BID)
  4. APIXABAN [Concomitant]
     Active Substance: APIXABAN
     Dosage: 5 MG, 2X/DAY
  5. ATORVASTATIN CALCIUM [Concomitant]
     Active Substance: ATORVASTATIN CALCIUM
     Dosage: 40 MG, 1X/DAY
     Route: 048
  6. AZITHROMYCIN [Concomitant]
     Active Substance: AZITHROMYCIN
     Route: 048
  7. CARVEDILOL [Concomitant]
     Active Substance: CARVEDILOL
     Dosage: 3.125 MG, 2X/DAY, (1 TABLET(S) TWO TIMES DAILY X 60 DAY(S) [LU CODE 183])
     Route: 048
  8. FUROSEMIDE [Concomitant]
     Active Substance: FUROSEMIDE
     Dosage: 20 MG, 1X/DAY
     Route: 048
  9. JARDIANCE [Concomitant]
     Active Substance: EMPAGLIFLOZIN
     Dosage: 10 MG, 1X/DAY, (1 TABLET(S) ONCE DAILY X 90 DAY(S))
  10. LACTULOSE [Concomitant]
     Active Substance: LACTULOSE
     Route: 048
  11. LASIX [Concomitant]
     Active Substance: FUROSEMIDE
     Indication: Weight control
     Dosage: 40 MG, 3X/DAY
  12. MIRABEGRON [Concomitant]
     Active Substance: MIRABEGRON
     Dosage: 50 MG, 1X/DAY, (EXTENDED RELEASE 24 HR [OD])
     Route: 048
  13. PANTOPRAZOLE SODIUM [Concomitant]
     Active Substance: PANTOPRAZOLE SODIUM
     Dosage: 40 MG, 1X/DAY, (DELAYED RELEASE (ENTERIC COATED)
     Route: 048
  14. PREGABALIN [Concomitant]
     Active Substance: PREGABALIN
     Dosage: 25 MG, 3X/DAY
     Route: 048
  15. RABEPRAZOLE [Concomitant]
     Active Substance: RABEPRAZOLE
     Dosage: 20 MG, 1X/DAY
     Route: 048
  16. SILODOSIN [Concomitant]
     Active Substance: SILODOSIN
     Dosage: 4 MG, 2X/DAY
     Route: 048
  17. TYLENOL [Concomitant]
     Active Substance: ACETAMINOPHEN
  18. VENTOLIN HFA [Concomitant]
     Active Substance: ALBUTEROL SULFATE

REACTIONS (6)
  - Lung disorder [Unknown]
  - Pulmonary congestion [Unknown]
  - Atrial fibrillation [Unknown]
  - Cardiac failure [Unknown]
  - Atrial flutter [Unknown]
  - Left ventricular hypertrophy [Unknown]

NARRATIVE: CASE EVENT DATE: 20250306
